FAERS Safety Report 12545003 (Version 2)
Quarter: 2016Q3

REPORT INFORMATION
  Report Type: Other
  Country: US (occurrence: US)
  Receive Date: 20160711
  Receipt Date: 20160720
  Transmission Date: 20161109
  Serious: Yes (Hospitalization)
  Sender: FDA-Public Use
  Company Number: US-UNITED THERAPEUTICS-UNT-2016-010750

PATIENT
  Age: 76 Year
  Sex: Female
  Weight: 71.2 kg

DRUGS (1)
  1. TYVASO [Suspect]
     Active Substance: TREPROSTINIL
     Indication: PULMONARY HYPERTENSION
     Dosage: 18-54 ?G, QID
     Dates: start: 20131218

REACTIONS (2)
  - Pneumonia aspiration [Unknown]
  - Epistaxis [Unknown]

NARRATIVE: CASE EVENT DATE: 20160529
